FAERS Safety Report 6571030-9 (Version None)
Quarter: 2010Q1

REPORT INFORMATION
  Report Type: 
  Country: None (occurrence: None)
  Receive Date: 20100204
  Receipt Date: 20100128
  Transmission Date: 20100710
  Serious: Yes (Hospitalization)
  Sender: FDA-Public Use
  Company Number: JP-NOVOPROD-303154

PATIENT
  Age: 39 Year
  Sex: Male

DRUGS (1)
  1. PENFILL N CHU [Suspect]
     Indication: TYPE 1 DIABETES MELLITUS
     Dosage: NOT REPORTED

REACTIONS (4)
  - ALTERED STATE OF CONSCIOUSNESS [None]
  - EPILEPSY [None]
  - HYPOGLYCAEMIA [None]
  - RETROGRADE AMNESIA [None]
